FAERS Safety Report 8122462-9 (Version None)
Quarter: 2012Q1

REPORT INFORMATION
  Report Type: 
  Country: None (occurrence: None)
  Receive Date: 20120208
  Receipt Date: 20110909
  Transmission Date: 20120608
  Serious: No
  Sender: FDA-Public Use
  Company Number: US-ASTRAZENECA-2011SE44738

PATIENT
  Age: 53 Year
  Sex: Female

DRUGS (1)
  1. ZAFIRLUKAST [Suspect]
     Route: 048

REACTIONS (2)
  - IMMOBILE [None]
  - DYSPNOEA [None]
